FAERS Safety Report 16840226 (Version 1)
Quarter: 2019Q3

REPORT INFORMATION
  Report Type: Report from Study
  Country: US (occurrence: US)
  Receive Date: 20190923
  Receipt Date: 20190923
  Transmission Date: 20191005
  Serious: Yes (Other)
  Sender: FDA-Public Use
  Company Number: US-PFIZER INC-2019401691

PATIENT
  Age: 13 Year
  Sex: Male
  Weight: 47.4 kg

DRUGS (6)
  1. VINCRISTINE SULFATE. [Suspect]
     Active Substance: VINCRISTINE SULFATE
     Indication: HODGKIN^S DISEASE
     Dosage: 1.4 MG/M2, IV PUSH OVER 1 MIN OR INFUSION ON DAY 8
     Route: 042
  2. PREDNISONE. [Suspect]
     Active Substance: PREDNISONE
     Indication: HODGKIN^S DISEASE
     Dosage: 20 MG/M2, BID ON DAYS 1-7
     Route: 048
     Dates: start: 20190130
  3. ETOPOSIDE. [Suspect]
     Active Substance: ETOPOSIDE
     Indication: HODGKIN^S DISEASE
     Dosage: 125 MG/M2, OVER 60-120 MINUTES ON DAYS 1-3
     Route: 042
     Dates: start: 20190130
  4. DOXORUBICIN HCL [Suspect]
     Active Substance: DOXORUBICIN HYDROCHLORIDE
     Indication: HODGKIN^S DISEASE
     Dosage: 25 MG/M2, BOLUS OVER 1-5 MIN OR BY INTERMITTENT INFUSION OVER 1-15 MIN ON DAYS 1 AND 2
     Route: 042
     Dates: start: 20190130
  5. BRENTUXIMAB VEDOTIN RECOMBINANT [Suspect]
     Active Substance: BRENTUXIMAB VEDOTIN
     Indication: HODGKIN^S DISEASE
     Dosage: 1.8 MG/KG, OVER 30 MINUTES ON DAY 1
     Route: 042
     Dates: start: 20190130
  6. CYCLOPHOSPHAMIDE. [Suspect]
     Active Substance: CYCLOPHOSPHAMIDE
     Indication: HODGKIN^S DISEASE
     Dosage: 600 MG/M2, OVER 30-60 MIN ON DAYS 1-2
     Route: 042
     Dates: start: 20190130

REACTIONS (2)
  - Insomnia [Recovering/Resolving]
  - Delirium [Recovering/Resolving]

NARRATIVE: CASE EVENT DATE: 20190418
